FAERS Safety Report 20198418 (Version 1)
Quarter: 2021Q4

REPORT INFORMATION
  Report Type: Spontaneous
  Country: US (occurrence: None)
  Receive Date: 20211216
  Receipt Date: 20211216
  Transmission Date: 20220303
  Serious: No
  Sender: FDA-Public Use
  Company Number: None

PATIENT
  Age: 41 Year
  Sex: Female
  Weight: 72 kg

DRUGS (2)
  1. EYSUVIS [Suspect]
     Active Substance: LOTEPREDNOL ETABONATE
     Indication: Dry eye
     Dosage: OTHER QUANTITY : 2 DROP(S);?FREQUENCY : 4 TIMES A DAY;?
     Route: 047
     Dates: start: 20211214, end: 20211215
  2. RETAINE MGD [Suspect]
     Active Substance: LIGHT MINERAL OIL\MINERAL OIL
     Indication: Dry eye
     Dosage: OTHER QUANTITY : 1 DROP(S);?FREQUENCY : AS NEEDED;?
     Route: 047
     Dates: start: 20211215, end: 20211216

REACTIONS (4)
  - Eye pain [None]
  - Eye irritation [None]
  - Ocular hyperaemia [None]
  - Capillary fragility [None]

NARRATIVE: CASE EVENT DATE: 20211215
